FAERS Safety Report 15886980 (Version 1)
Quarter: 2019Q1

REPORT INFORMATION
  Report Type: Spontaneous
  Country: TN (occurrence: TN)
  Receive Date: 20190130
  Receipt Date: 20190130
  Transmission Date: 20190417
  Serious: Yes (Death)
  Sender: FDA-Public Use
  Company Number: TN-UCBSA-2019002966

PATIENT
  Age: 70 Year
  Sex: Female

DRUGS (3)
  1. LASILIX [Concomitant]
     Active Substance: FUROSEMIDE
     Indication: CARDIAC DISORDER
  2. XYZALL [Suspect]
     Active Substance: LEVOCETIRIZINE DIHYDROCHLORIDE
     Indication: SKIN DISORDER
     Dosage: 5 MG, UNK
     Dates: start: 20181115, end: 20181121
  3. DIGOXIN. [Concomitant]
     Active Substance: DIGOXIN
     Indication: CARDIAC DISORDER

REACTIONS (2)
  - Death [Fatal]
  - Swelling [Fatal]

NARRATIVE: CASE EVENT DATE: 201811
